FAERS Safety Report 18710436 (Version 1)
Quarter: 2021Q1

REPORT INFORMATION
  Report Type: Spontaneous
  Country: US (occurrence: US)
  Receive Date: 20210107
  Receipt Date: 20210107
  Transmission Date: 20210419
  Serious: No
  Sender: FDA-Public Use
  Company Number: US-GLENMARK PHARMACEUTICALS-2020GMK045505

PATIENT

DRUGS (5)
  1. RANITIDINE TABLETS USP, 150 MG [Suspect]
     Active Substance: RANITIDINE HYDROCHLORIDE
     Dosage: 150 MG, OD (DOSE REDUCED AFTER EXPERINCING VERTIGO)
     Route: 048
     Dates: end: 20191109
  2. RANITIDINE TABLETS USP, 150 MG [Suspect]
     Active Substance: RANITIDINE HYDROCHLORIDE
     Indication: GASTRITIS EROSIVE
     Dosage: 150 MG, BID
     Route: 048
     Dates: start: 20160408
  3. OXYBUTYNIN. [Concomitant]
     Active Substance: OXYBUTYNIN CHLORIDE
     Indication: POLLAKIURIA
     Dosage: 15 MG, UNK
     Route: 065
     Dates: start: 2019
  4. RANITIDINE TABLETS USP, 150 MG [Suspect]
     Active Substance: RANITIDINE HYDROCHLORIDE
     Indication: GASTROOESOPHAGEAL REFLUX DISEASE
     Dosage: UNK (TOOK MORE RANTIDINE TABLET AND EXPERINCED VERTIGO)
     Route: 048
     Dates: start: 201608
  5. AMLODIPINE [Concomitant]
     Active Substance: AMLODIPINE BESYLATE
     Indication: HYPERTENSION
     Dosage: 10 MG, UNK
     Route: 065
     Dates: start: 2019

REACTIONS (6)
  - Extra dose administered [Unknown]
  - Abdominal pain upper [Not Recovered/Not Resolved]
  - Recalled product administered [Unknown]
  - Dysgeusia [Not Recovered/Not Resolved]
  - Foaming at mouth [Not Recovered/Not Resolved]
  - Vertigo [Recovered/Resolved]

NARRATIVE: CASE EVENT DATE: 201608
